FAERS Safety Report 17415709 (Version 12)
Quarter: 2020Q2

REPORT INFORMATION
  Report Type: Report from Study
  Country: US (occurrence: US)
  Receive Date: 20200213
  Receipt Date: 20200627
  Transmission Date: 20200713
  Serious: Yes (Other)
  Sender: FDA-Public Use
  Company Number: NVSC2020US033578

PATIENT
  Sex: Female

DRUGS (5)
  1. ILARIS [Suspect]
     Active Substance: CANAKINUMAB
     Indication: PRODUCT USED FOR UNKNOWN INDICATION
     Dosage: 150 MG, QMO
     Route: 058
  2. ILARIS [Suspect]
     Active Substance: CANAKINUMAB
     Route: 058
  3. ILARIS [Suspect]
     Active Substance: CANAKINUMAB
     Route: 058
  4. ILARIS [Suspect]
     Active Substance: CANAKINUMAB
     Dosage: 150 MG, QMO
     Route: 058
  5. ILARIS [Suspect]
     Active Substance: CANAKINUMAB
     Route: 058

REACTIONS (16)
  - Incontinence [Unknown]
  - Insomnia [Unknown]
  - Stress [Unknown]
  - Headache [Unknown]
  - Diarrhoea [Unknown]
  - Back pain [Unknown]
  - Abdominal pain [Unknown]
  - Fatigue [Unknown]
  - Night sweats [Unknown]
  - Nausea [Unknown]
  - Pyrexia [Unknown]
  - Arthralgia [Unknown]
  - Mental impairment [Unknown]
  - General physical health deterioration [Unknown]
  - Musculoskeletal pain [Unknown]
  - Vomiting [Unknown]
